FAERS Safety Report 7663905-4 (Version None)
Quarter: 2011Q3

REPORT INFORMATION
  Report Type: 
  Country: None (occurrence: None)
  Receive Date: 20110805
  Receipt Date: 20100730
  Transmission Date: 20111222
  Serious: No
  Sender: FDA-Public Use
  Company Number: US-ABBOTT-10P-163-0661982-00

PATIENT
  Sex: Male
  Weight: 74.002 kg

DRUGS (12)
  1. BENICAR [Concomitant]
     Indication: HYPERTENSION
  2. ALPRAZOLAM [Concomitant]
     Indication: INSOMNIA
     Route: 048
  3. FIBERCON [Concomitant]
     Indication: PRODUCT USED FOR UNKNOWN INDICATION
  4. GAVISCON [Concomitant]
     Indication: DYSPEPSIA
  5. OMEGA FISH OIL [Concomitant]
     Indication: PRODUCT USED FOR UNKNOWN INDICATION
  6. NIASPAN [Suspect]
     Indication: BLOOD CHOLESTEROL INCREASED
     Dosage: AT HOUR OF SLEEP
     Route: 048
     Dates: start: 20100301, end: 20100725
  7. CARVEDILOL [Concomitant]
     Indication: HYPERTENSION
  8. NIASPAN [Suspect]
     Indication: ARTERIOSCLEROSIS
     Route: 048
     Dates: start: 20100730
  9. CENTRUM MULTIVITAMIN [Concomitant]
     Indication: PRODUCT USED FOR UNKNOWN INDICATION
  10. ASPIRIN [Concomitant]
     Indication: PRODUCT USED FOR UNKNOWN INDICATION
     Dosage: AT HOUR OF SLEEP, 1 HR BEFORE NIASPAN
     Route: 048
  11. SPIRIVA [Concomitant]
     Indication: PRODUCT USED FOR UNKNOWN INDICATION
     Route: 055
  12. LEXAPRO [Concomitant]
     Indication: ANXIETY
     Dosage: TAKES 1/2 TABLET AS NEEDED

REACTIONS (4)
  - MUSCLE SPASMS [None]
  - FATIGUE [None]
  - BLOOD CHOLESTEROL INCREASED [None]
  - HOT FLUSH [None]
